FAERS Safety Report 14119332 (Version 1)
Quarter: 2017Q4

REPORT INFORMATION
  Report Type: Spontaneous
  Country: US (occurrence: US)
  Receive Date: 20171024
  Receipt Date: 20171024
  Transmission Date: 20180321
  Serious: No
  Sender: FDA-Public Use
  Company Number: US-PFIZER INC-2017388591

PATIENT
  Age: 69 Year
  Sex: Female
  Weight: 62.1 kg

DRUGS (2)
  1. IBRANCE [Suspect]
     Active Substance: PALBOCICLIB
     Indication: BREAST CANCER FEMALE
     Dosage: 75 MG, CYCLIC (DAILY FOR 21 DAYS, THEN OFF FOR 7 DAYS)
     Route: 048
     Dates: start: 201702, end: 20171018
  2. FASLODEX [Concomitant]
     Active Substance: FULVESTRANT
     Indication: BREAST CANCER FEMALE
     Dosage: 500 MG, UNK (EVERY 21 DAYS)
     Dates: start: 201703, end: 20171018

REACTIONS (1)
  - Neoplasm progression [Not Recovered/Not Resolved]

NARRATIVE: CASE EVENT DATE: 20171017
